FAERS Safety Report 21105840 (Version 2)
Quarter: 2022Q3

REPORT INFORMATION
  Report Type: Spontaneous
  Country: US (occurrence: US)
  Receive Date: 20220720
  Receipt Date: 20220818
  Transmission Date: 20221027
  Serious: No
  Sender: FDA-Public Use
  Company Number: US-GSKCCFUS-Case-01438027_AE-82548

PATIENT
  Sex: Male

DRUGS (1)
  1. NUCALA [Suspect]
     Active Substance: MEPOLIZUMAB
     Indication: Asthma
     Dosage: AI 100MG/ML 1X1ML_US-GSK,100 MG/ML

REACTIONS (3)
  - Wrong technique in device usage process [Unknown]
  - Underdose [Unknown]
  - Product complaint [Unknown]
